FAERS Safety Report 9852834 (Version 1)
Quarter: 2014Q1

REPORT INFORMATION
  Report Type: Spontaneous
  Country: US (occurrence: None)
  Receive Date: 20140128
  Receipt Date: 20140128
  Transmission Date: 20141002
  Serious: Yes (Hospitalization)
  Sender: FDA-Public Use
  Company Number: None

PATIENT
  Age: 75 Year
  Sex: Female
  Weight: 86.5 kg

DRUGS (1)
  1. FENTANYL [Suspect]
     Indication: PAIN
     Route: 062
     Dates: start: 20131121, end: 20131122

REACTIONS (2)
  - Respiratory depression [None]
  - Drug dependence [None]
